FAERS Safety Report 9748092 (Version 1)
Quarter: 2013Q4

REPORT INFORMATION
  Report Type: Spontaneous
  Country: CH (occurrence: CH)
  Receive Date: 20131212
  Receipt Date: 20131212
  Transmission Date: 20140711
  Serious: Yes (Other)
  Sender: FDA-Public Use
  Company Number: CH-BAYER-2013-148903

PATIENT
  Age: 38 Year
  Sex: Female
  Weight: 64.85 kg

DRUGS (1)
  1. BETAFERON [Suspect]
     Indication: MULTIPLE SCLEROSIS
     Dosage: 250 G, QOD
     Route: 058
     Dates: start: 20080414, end: 20130820

REACTIONS (2)
  - Respiratory tract infection [Recovered/Resolved]
  - Ear infection [Recovered/Resolved]
